FAERS Safety Report 11920446 (Version 1)
Quarter: 2016Q1

REPORT INFORMATION
  Report Type: Spontaneous
  Country: IL (occurrence: IL)
  Receive Date: 20160115
  Receipt Date: 20160115
  Transmission Date: 20160526
  Serious: Yes (Other)
  Sender: FDA-Public Use
  Company Number: IL-GLAXOSMITHKLINE-IL2016GSK004264

PATIENT
  Age: 40 Year
  Sex: Female

DRUGS (1)
  1. ZYBAN [Suspect]
     Active Substance: BUPROPION HYDROCHLORIDE
     Indication: EX-TOBACCO USER
     Dosage: 150 MG, UNK
     Route: 048
     Dates: start: 2015, end: 2015

REACTIONS (5)
  - Myocardial infarction [Recovered/Resolved]
  - Paralysis [Recovered/Resolved]
  - Tachycardia [Recovered/Resolved]
  - Suffocation feeling [Recovered/Resolved]
  - Headache [Recovered/Resolved]
